FAERS Safety Report 23379239 (Version 1)
Quarter: 2024Q1

REPORT INFORMATION
  Report Type: Spontaneous
  Country: US (occurrence: None)
  Receive Date: 20240107
  Receipt Date: 20240107
  Transmission Date: 20240409
  Serious: Yes (Other)
  Sender: FDA-Public Use
  Company Number: None

PATIENT
  Age: 84 Year
  Sex: Male
  Weight: 94.5 kg

DRUGS (8)
  1. DORZOLAMIDE HYDROCHLORIDE AND TIMOLOL MALEATE [Suspect]
     Active Substance: DORZOLAMIDE HYDROCHLORIDE\TIMOLOL MALEATE
     Indication: Glaucoma
     Dosage: OTHER QUANTITY : 0.2 SINGLE USE PLASTIC;?FREQUENCY : TWICE A DAY;?
     Route: 047
     Dates: start: 20230620, end: 20240106
  2. ALLOPURINOL [Concomitant]
     Active Substance: ALLOPURINOL
  3. COLCHICINE [Concomitant]
     Active Substance: COLCHICINE
  4. SYNTHROID [Concomitant]
     Active Substance: LEVOTHYROXINE SODIUM
  5. CEFDINIR [Concomitant]
     Active Substance: CEFDINIR
  6. BENZONATATE [Concomitant]
  7. vitamins b12 [Concomitant]
  8. VITAMIN D3 [Concomitant]
     Active Substance: CHOLECALCIFEROL

REACTIONS (3)
  - Dysphagia [None]
  - Dysgeusia [None]
  - Pharyngeal swelling [None]

NARRATIVE: CASE EVENT DATE: 20240106
